FAERS Safety Report 24435662 (Version 1)
Quarter: 2024Q4

REPORT INFORMATION
  Report Type: Spontaneous
  Country: CN (occurrence: CN)
  Receive Date: 20241015
  Receipt Date: 20241015
  Transmission Date: 20250115
  Serious: Yes (Other)
  Sender: Haleon PLC
  Company Number: CN-HALEON-2202027

PATIENT
  Age: 59 Year
  Sex: Male

DRUGS (2)
  1. IBUPROFEN [Suspect]
     Active Substance: IBUPROFEN
     Indication: Traumatic heart injury
     Route: 048
     Dates: start: 20241008, end: 20241008
  2. CEFACLOR [Suspect]
     Active Substance: CEFACLOR
     Indication: Product used for unknown indication
     Route: 048
     Dates: start: 20241008

REACTIONS (10)
  - Rash [Recovering/Resolving]
  - Scratch [Recovering/Resolving]
  - Pruritus [Recovering/Resolving]
  - Product prescribing issue [Unknown]
  - Swelling [Recovering/Resolving]
  - Acrochordon [Recovering/Resolving]
  - Skin injury [Recovering/Resolving]
  - Skin lesion [Recovering/Resolving]
  - Erythema [Recovering/Resolving]
  - Discharge [Recovering/Resolving]

NARRATIVE: CASE EVENT DATE: 20241008
